FAERS Safety Report 22143185 (Version 1)
Quarter: 2023Q1

REPORT INFORMATION
  Report Type: Spontaneous
  Country: US (occurrence: US)
  Receive Date: 20230327
  Receipt Date: 20230327
  Transmission Date: 20230417
  Serious: No
  Sender: FDA-Public Use
  Company Number: US-ELI_LILLY_AND_COMPANY-US202303012674

PATIENT
  Age: 34 Year
  Sex: Male

DRUGS (6)
  1. ADCIRCA [Suspect]
     Active Substance: TADALAFIL
     Indication: Product used for unknown indication
     Dosage: 20 MG, DAILY
     Route: 065
     Dates: start: 20230313
  2. AMBRISENTAN [Suspect]
     Active Substance: AMBRISENTAN
     Indication: Product used for unknown indication
     Dosage: 10 MG, DAILY
     Route: 065
     Dates: end: 20230311
  3. TYVASO [Suspect]
     Active Substance: TREPROSTINIL
     Indication: Pulmonary arterial hypertension
     Dosage: UNK UNK, UNKNOWN
     Route: 055
     Dates: start: 202212
  4. TYVASO [Suspect]
     Active Substance: TREPROSTINIL
     Dosage: 48 UG, DAILY
     Route: 055
  5. TYVASO [Suspect]
     Active Substance: TREPROSTINIL
     Dosage: 32 UG, DAILY
     Route: 055
  6. TYVASO [Suspect]
     Active Substance: TREPROSTINIL
     Dosage: 16 UG, QID
     Route: 055

REACTIONS (1)
  - Feeling abnormal [Unknown]
